FAERS Safety Report 8321796-2 (Version None)
Quarter: 2012Q2

REPORT INFORMATION
  Report Type: 
  Country: None (occurrence: None)
  Receive Date: 20120430
  Receipt Date: 20120423
  Transmission Date: 20120825
  Serious: Yes (Hospitalization)
  Sender: FDA-Public Use
  Company Number: US-AMGEN-USASP2011053838

PATIENT
  Age: 79 Year
  Sex: Female

DRUGS (5)
  1. ENBREL [Suspect]
     Indication: RHEUMATOID ARTHRITIS
     Dosage: 25 MG, 2 TIMES/WK
     Route: 058
     Dates: start: 20050101
  2. ESTRADIOL [Concomitant]
     Indication: POSTMENOPAUSE
     Dosage: 1 G, QD
     Route: 048
  3. ENBREL [Suspect]
     Dosage: 25 MG, 2 TIMES/WK
     Dates: start: 19970101
  4. FOSAMAX [Concomitant]
     Indication: OSTEOPOROSIS
     Dosage: 70 G, QWK
  5. CARDURA [Concomitant]
     Indication: HYPERTENSION
     Dosage: 4 G, QD
     Route: 048

REACTIONS (2)
  - SYNCOPE [None]
  - INJECTION SITE PAIN [None]
